FAERS Safety Report 6139311-0 (Version None)
Quarter: 2009Q2

REPORT INFORMATION
  Report Type: 
  Country: None (occurrence: None)
  Receive Date: 20090401
  Receipt Date: 20090324
  Transmission Date: 20091009
  Serious: Yes (Hospitalization)
  Sender: FDA-Public Use
  Company Number: DE-AMGEN-UK337315

PATIENT
  Sex: Female

DRUGS (5)
  1. ARANESP [Suspect]
     Indication: DRUG USE FOR UNKNOWN INDICATION
     Route: 058
     Dates: start: 20061228
  2. SIMVASTATIN [Concomitant]
     Route: 065
  3. TAXOTERE [Concomitant]
     Route: 042
     Dates: start: 20061221, end: 20061221
  4. ADRIAMYCIN RDF [Concomitant]
     Route: 042
     Dates: start: 20061221, end: 20061221
  5. CYCLOPHOSPHAMIDE [Concomitant]
     Route: 042
     Dates: start: 20061221, end: 20061221

REACTIONS (1)
  - BONE PAIN [None]
